FAERS Safety Report 9916437 (Version 1)
Quarter: 2014Q1

REPORT INFORMATION
  Report Type: Spontaneous
  Country: US (occurrence: None)
  Receive Date: 20140220
  Receipt Date: 20140220
  Transmission Date: 20141002
  Serious: Yes (Other)
  Sender: FDA-Public Use
  Company Number: None

PATIENT
  Age: 52 Year
  Sex: 0

DRUGS (1)
  1. VENLAFAXINE [Suspect]
     Route: 048

REACTIONS (6)
  - Mood swings [None]
  - Skin exfoliation [None]
  - Dry mouth [None]
  - Swollen tongue [None]
  - Throat irritation [None]
  - Dysphagia [None]
